FAERS Safety Report 6347510-8 (Version None)
Quarter: 2009Q3

REPORT INFORMATION
  Report Type: 
  Country: None (occurrence: None)
  Receive Date: 20090910
  Receipt Date: 20090903
  Transmission Date: 20100115
  Serious: Yes (Hospitalization)
  Sender: FDA-Public Use
  Company Number: US-AMGEN-QUU363074

PATIENT
  Sex: Male

DRUGS (7)
  1. EPOGEN [Suspect]
     Indication: RENAL FAILURE CHRONIC
  2. COUMADIN [Concomitant]
  3. LOVENOX [Concomitant]
  4. CALCIUM CARBONATE [Concomitant]
  5. FOLIC ACID [Concomitant]
  6. POLY-VI-SOL [Concomitant]
  7. FERRLECIT [Concomitant]

REACTIONS (2)
  - BACTERAEMIA [None]
  - THERAPEUTIC RESPONSE DECREASED [None]
